FAERS Safety Report 7655709-3 (Version None)
Quarter: 2011Q3

REPORT INFORMATION
  Report Type: 
  Country: None (occurrence: None)
  Receive Date: 20110804
  Receipt Date: 20110707
  Transmission Date: 20111222
  Serious: Yes (Other)
  Sender: FDA-Public Use
  Company Number: US-BAYER-201033317NA

PATIENT
  Age: 21 Year
  Sex: Female
  Weight: 53 kg

DRUGS (4)
  1. CLONAZEPAM [Concomitant]
     Indication: ANXIETY
     Dosage: DAILY DOSE .5 MG/24HR
     Route: 048
     Dates: start: 20081027, end: 20090513
  2. EFFEXOR XR [Concomitant]
     Indication: ANXIETY
     Dosage: DAILY DOSE 150 MG/24HR
     Route: 048
     Dates: start: 20071128, end: 20080927
  3. YASMIN [Suspect]
     Indication: PRODUCT USED FOR UNKNOWN INDICATION
     Route: 048
     Dates: start: 20050701
  4. YAZ [Suspect]
     Indication: CONTRACEPTION

REACTIONS (10)
  - CHOLECYSTITIS [None]
  - WEIGHT DECREASED [None]
  - MALNUTRITION [None]
  - GALLBLADDER DISORDER [None]
  - ABDOMINAL PAIN [None]
  - ENAMEL ANOMALY [None]
  - NAUSEA [None]
  - DIARRHOEA [None]
  - BONE PAIN [None]
  - ARTHRALGIA [None]
